FAERS Safety Report 16821630 (Version 1)
Quarter: 2019Q3

REPORT INFORMATION
  Report Type: Spontaneous
  Country: US (occurrence: US)
  Receive Date: 20190918
  Receipt Date: 20190918
  Transmission Date: 20191005
  Serious: Yes (Other)
  Sender: FDA-Public Use
  Company Number: US-ALIMERA SCIENCES INC.-US-IL-2016-002647

PATIENT
  Age: 60 Year
  Sex: Female

DRUGS (5)
  1. LUMIGAN [Concomitant]
     Active Substance: BIMATOPROST
     Indication: NORMAL TENSION GLAUCOMA
     Dosage: AT BEDTIME, BOTH EYES
     Dates: start: 20100709
  2. ARTIFICIAL TEARS OINTMENT [Concomitant]
     Indication: DRY EYE
     Dosage: BOTH EYES, PRN
     Dates: start: 2014
  3. ARTIFICIAL TEARS [Concomitant]
     Active Substance: GLYCERIN\HYPROMELLOSES\POLYETHYLENE GLYCOL 400
     Indication: DRY EYE
     Dosage: BOTH EYES, PRN
     Dates: start: 2014
  4. ILUVIEN [Suspect]
     Active Substance: FLUOCINOLONE ACETONIDE
     Indication: DIABETIC RETINAL OEDEMA
     Dosage: 0.25 ?G, QD
     Route: 031
     Dates: start: 20160425
  5. SIMBRINZA [Concomitant]
     Active Substance: BRIMONIDINE TARTRATE\BRINZOLAMIDE
     Indication: NORMAL TENSION GLAUCOMA
     Dosage: BOTH EYES, BID
     Dates: start: 20150325

REACTIONS (1)
  - Endophthalmitis [Not Recovered/Not Resolved]

NARRATIVE: CASE EVENT DATE: 20160502
